FAERS Safety Report 5197553-5 (Version None)
Quarter: 2006Q4

REPORT INFORMATION
  Report Type: 
  Country: None (occurrence: None)
  Receive Date: 20060926
  Receipt Date: 20060727
  Transmission Date: 20070319
  Serious: No
  Sender: FDA-Public Use
  Company Number: SP00925

PATIENT
  Age: 73 Year
  Sex: Female
  Weight: 74.8435 kg

DRUGS (8)
  1. XIFAXAN [Suspect]
     Indication: GASTRIC DISORDER
     Dosage: 600MG/QD, ORAL
     Route: 048
     Dates: start: 20060215, end: 20060225
  2. NITROQUICK [Concomitant]
  3. NORVASC [Concomitant]
  4. SYNTHROID [Concomitant]
  5. IMDUR [Concomitant]
  6. CRESTOR [Concomitant]
  7. TOPROL-XL [Concomitant]
  8. ASPIRIN [Concomitant]

REACTIONS (3)
  - CHEILITIS [None]
  - DRY MOUTH [None]
  - ORAL CANDIDIASIS [None]
